FAERS Safety Report 14508873 (Version 1)
Quarter: 2018Q1

REPORT INFORMATION
  Report Type: Spontaneous
  Country: US (occurrence: US)
  Receive Date: 20180209
  Receipt Date: 20180209
  Transmission Date: 20180509
  Serious: Yes (Hospitalization)
  Sender: FDA-Public Use
  Company Number: US-ROCHE-2064494

PATIENT
  Age: 67 Year
  Sex: Female
  Weight: 92 kg

DRUGS (36)
  1. AMBRISENTAN [Suspect]
     Active Substance: AMBRISENTAN
     Indication: PULMONARY HYPERTENSION
     Route: 048
     Dates: start: 20150901
  2. FUROSEMIDE. [Concomitant]
     Active Substance: FUROSEMIDE
  3. VENTOLIN [Concomitant]
     Active Substance: ALBUTEROL SULFATE
  4. ZYPREXA [Concomitant]
     Active Substance: OLANZAPINE
  5. SYMBICORT [Concomitant]
     Active Substance: BUDESONIDE\FORMOTEROL FUMARATE DIHYDRATE
  6. DUONEB [Concomitant]
     Active Substance: ALBUTEROL SULFATE\IPRATROPIUM BROMIDE
  7. PRAVASTATIN. [Concomitant]
     Active Substance: PRAVASTATIN
  8. FENOFIBRATE. [Concomitant]
     Active Substance: FENOFIBRATE
  9. THIAMINE HYDROCHLORIDE. [Concomitant]
     Active Substance: THIAMINE HYDROCHLORIDE
  10. ZOLOFT [Concomitant]
     Active Substance: SERTRALINE HYDROCHLORIDE
  11. AMBRISENTAN [Suspect]
     Active Substance: AMBRISENTAN
     Indication: RAYNAUD^S PHENOMENON
  12. REVATIO [Concomitant]
     Active Substance: SILDENAFIL CITRATE
  13. TYLENOL [Concomitant]
     Active Substance: ACETAMINOPHEN
  14. ADCIRCA [Concomitant]
     Active Substance: TADALAFIL
  15. SYNTHROID [Concomitant]
     Active Substance: LEVOTHYROXINE SODIUM
  16. ZOFRAN [Concomitant]
     Active Substance: ONDANSETRON HYDROCHLORIDE
  17. MORPHINE [Concomitant]
     Active Substance: MORPHINE
  18. VELETRI [Concomitant]
     Active Substance: EPOPROSTENOL
  19. IMODIUM [Concomitant]
     Active Substance: LOPERAMIDE HYDROCHLORIDE
  20. SPIRIVA [Concomitant]
     Active Substance: TIOTROPIUM BROMIDE MONOHYDRATE
  21. ZOCOR [Concomitant]
     Active Substance: SIMVASTATIN
  22. SILDENAFIL CITRATE. [Concomitant]
     Active Substance: SILDENAFIL CITRATE
  23. NICOTINAMIDE [Concomitant]
     Active Substance: NIACINAMIDE
  24. PYRIDOXINE HYDROCHLORIDE. [Concomitant]
     Active Substance: PYRIDOXINE HYDROCHLORIDE
  25. LEVOTHYROXINE. [Concomitant]
     Active Substance: LEVOTHYROXINE
  26. EPOPROSTENOL. [Concomitant]
     Active Substance: EPOPROSTENOL
  27. PLAVIX [Concomitant]
     Active Substance: CLOPIDOGREL BISULFATE
  28. ASPIRIN. [Concomitant]
     Active Substance: ASPIRIN
  29. K-DUR [Concomitant]
     Active Substance: POTASSIUM CHLORIDE
  30. PRILOSEC [Concomitant]
     Active Substance: OMEPRAZOLE MAGNESIUM
  31. RETINOL [Concomitant]
     Active Substance: RETINOL
  32. RIBOFLAVIN [Concomitant]
     Active Substance: RIBOFLAVIN
  33. RITUXAN [Suspect]
     Active Substance: RITUXIMAB
     Indication: PRODUCT USED FOR UNKNOWN INDICATION
     Route: 065
  34. UPTRAVI [Concomitant]
     Active Substance: SELEXIPAG
  35. TYVASO [Concomitant]
     Active Substance: TREPROSTINIL
  36. ADCIRCA [Concomitant]
     Active Substance: TADALAFIL

REACTIONS (14)
  - Fluid retention [Unknown]
  - Pleural effusion [Recovered/Resolved]
  - Localised oedema [Not Recovered/Not Resolved]
  - Abdominal distension [Unknown]
  - Pulmonary oedema [Unknown]
  - Oedema peripheral [Not Recovered/Not Resolved]
  - Fluid overload [Unknown]
  - Secretion discharge [Not Recovered/Not Resolved]
  - Dyspnoea [Not Recovered/Not Resolved]
  - Peripheral swelling [Not Recovered/Not Resolved]
  - Headache [Unknown]
  - Weight increased [Unknown]
  - Pneumocentesis [Recovered/Resolved]
  - Cough [Not Recovered/Not Resolved]

NARRATIVE: CASE EVENT DATE: 20170521
